FAERS Safety Report 4745372-3 (Version None)
Quarter: 2005Q3

REPORT INFORMATION
  Report Type: 
  Country: None (occurrence: None)
  Receive Date: 20050815
  Receipt Date: 20041025
  Transmission Date: 20060218
  Serious: Yes (Other)
  Sender: FDA-Public Use
  Company Number: 2004083064

PATIENT
  Sex: Female

DRUGS (2)
  1. ROLAIDS [Suspect]
     Indication: GASTROOESOPHAGEAL REFLUX DISEASE
     Dosage: 4-6 TABS QD, ORAL
     Route: 048
     Dates: start: 19890101
  2. VITAMINS (VITAMINS) [Concomitant]

REACTIONS (1)
  - NEPHROLITHIASIS [None]
